FAERS Safety Report 5976332-2 (Version None)
Quarter: 2008Q4

REPORT INFORMATION
  Report Type: 
  Country: None (occurrence: None)
  Receive Date: 20081202
  Receipt Date: 20081126
  Transmission Date: 20090506
  Serious: Yes (Other)
  Sender: FDA-Public Use
  Company Number: JP-ROXANE LABORATORIES, INC.-2008-RO-00294RO

PATIENT
  Age: 52 Year
  Sex: Female

DRUGS (6)
  1. METHOTREXATE [Suspect]
     Indication: DIFFUSE LARGE B-CELL LYMPHOMA
  2. METHOTREXATE [Suspect]
  3. METHOTREXATE [Suspect]
  4. METHOTREXATE [Suspect]
  5. RITUXIMAB [Suspect]
     Indication: DIFFUSE LARGE B-CELL LYMPHOMA
  6. TOPICAL CORTICOSTEROID [Concomitant]
     Indication: ANTERIOR CHAMBER INFLAMMATION
     Route: 061

REACTIONS (3)
  - ANTERIOR CHAMBER INFLAMMATION [None]
  - CORNEAL DISORDER [None]
  - DIFFUSE LARGE B-CELL LYMPHOMA [None]
